FAERS Safety Report 21307499 (Version 2)
Quarter: 2022Q3

REPORT INFORMATION
  Report Type: Report from Study
  Country: CO (occurrence: CO)
  Receive Date: 20220908
  Receipt Date: 20220919
  Transmission Date: 20221027
  Serious: Yes (Death, Hospitalization)
  Sender: FDA-Public Use
  Company Number: CO-NOVARTISPH-NVSC2022CO172356

PATIENT
  Age: 34 Year
  Sex: Female

DRUGS (2)
  1. KISQALI [Suspect]
     Active Substance: RIBOCICLIB
     Indication: Breast cancer metastatic
     Dosage: UNK
     Route: 048
  2. FEMARA [Suspect]
     Active Substance: LETROZOLE
     Indication: Breast cancer
     Dosage: UNK, QD
     Route: 048

REACTIONS (12)
  - Death [Fatal]
  - Malaise [Unknown]
  - Seizure [Unknown]
  - Vomiting [Unknown]
  - Headache [Unknown]
  - Localised oedema [Unknown]
  - Metastasis [Unknown]
  - Blindness [Unknown]
  - Aphasia [Unknown]
  - Speech disorder [Unknown]
  - Decreased appetite [Unknown]
  - General physical health deterioration [Unknown]

NARRATIVE: CASE EVENT DATE: 20220801
